FAERS Safety Report 20804447 (Version 16)
Quarter: 2025Q2

REPORT INFORMATION
  Report Type: Report from Study
  Country: IN (occurrence: IN)
  Receive Date: 20220509
  Receipt Date: 20250610
  Transmission Date: 20250716
  Serious: Yes (Other)
  Sender: NOVARTIS
  Company Number: IN-NOVARTISPH-NVSC2022IN105980

PATIENT
  Age: 67 Year
  Sex: Female

DRUGS (10)
  1. RIBOCICLIB [Suspect]
     Active Substance: RIBOCICLIB
     Indication: Breast cancer metastatic
     Dosage: 600 MG, QD
     Route: 048
     Dates: start: 20191227
  2. RIBOCICLIB [Suspect]
     Active Substance: RIBOCICLIB
     Indication: Clear cell endometrial carcinoma
     Dosage: 600 MG, QD
     Route: 065
     Dates: start: 20210403
  3. RIBOCICLIB [Suspect]
     Active Substance: RIBOCICLIB
     Indication: Hormone receptor positive HER2 negative breast cancer
     Dosage: 600 MG, QD
     Route: 065
     Dates: start: 20220818
  4. RIBOCICLIB [Suspect]
     Active Substance: RIBOCICLIB
     Dosage: 400 MG, QD
     Route: 048
  5. RIBOCICLIB [Suspect]
     Active Substance: RIBOCICLIB
     Dosage: 200 MG, QD FOR 21 DAYS THEN STOP FOR 7 DAYS THE AGAIN RESTART
     Route: 048
  6. RIBOCICLIB [Suspect]
     Active Substance: RIBOCICLIB
     Dosage: 200 MG, QD
     Route: 048
  7. FULVESTRANT [Concomitant]
     Active Substance: FULVESTRANT
     Indication: Breast cancer metastatic
     Route: 065
     Dates: start: 20240523
  8. IBANDRONATE SODIUM [Concomitant]
     Active Substance: IBANDRONATE SODIUM
     Indication: Breast cancer metastatic
     Route: 065
     Dates: start: 20240523
  9. PACLITAXEL [Concomitant]
     Active Substance: PACLITAXEL
     Indication: Breast cancer metastatic
     Route: 065
     Dates: start: 20240523
  10. CARBOPLATIN [Concomitant]
     Active Substance: CARBOPLATIN
     Indication: Breast cancer metastatic
     Route: 065
     Dates: start: 20240523

REACTIONS (19)
  - Uterine cancer [Unknown]
  - Second primary malignancy [Unknown]
  - Lymphadenopathy mediastinal [Unknown]
  - Hypothyroidism [Unknown]
  - Metastases to bone [Recovered/Resolved]
  - Weight decreased [Unknown]
  - Decreased appetite [Unknown]
  - Swelling [Unknown]
  - Respiratory rate increased [Unknown]
  - Blood pressure systolic increased [Unknown]
  - Pain [Unknown]
  - Hypermetabolism [Unknown]
  - Blood calcium decreased [Unknown]
  - Inguinal hernia [Recovered/Resolved]
  - Off label use [Unknown]
  - Inguinal hernia [Unknown]
  - Heart rate increased [Unknown]
  - Pain in extremity [Unknown]
  - Tenderness [Unknown]

NARRATIVE: CASE EVENT DATE: 20210427
